FAERS Safety Report 12489701 (Version 1)
Quarter: 2016Q2

REPORT INFORMATION
  Report Type: Spontaneous
  Country: US (occurrence: US)
  Receive Date: 20160622
  Receipt Date: 20160622
  Transmission Date: 20160815
  Serious: Yes (Other)
  Sender: FDA-Public Use
  Company Number: US-JNJFOC-20160613166

PATIENT
  Age: 24 Month
  Sex: Male

DRUGS (8)
  1. DOXORUBICIN HYDROCHLORIDE. [Suspect]
     Active Substance: DOXORUBICIN HYDROCHLORIDE
     Indication: HEPATOBLASTOMA
     Route: 042
  2. CISPLATIN. [Suspect]
     Active Substance: CISPLATIN
     Indication: EAGLE BARRETT SYNDROME
     Route: 065
  3. VINCRISTINE [Suspect]
     Active Substance: VINCRISTINE
     Indication: EAGLE BARRETT SYNDROME
     Route: 065
  4. FLUOROURACIL 5 FU [Suspect]
     Active Substance: FLUOROURACIL
     Indication: HEPATOBLASTOMA
     Route: 065
  5. FLUOROURACIL 5 FU [Suspect]
     Active Substance: FLUOROURACIL
     Indication: EAGLE BARRETT SYNDROME
     Route: 065
  6. DOXORUBICIN HYDROCHLORIDE. [Suspect]
     Active Substance: DOXORUBICIN HYDROCHLORIDE
     Indication: EAGLE BARRETT SYNDROME
     Route: 042
  7. CISPLATIN. [Suspect]
     Active Substance: CISPLATIN
     Indication: HEPATOBLASTOMA
     Route: 065
  8. VINCRISTINE [Suspect]
     Active Substance: VINCRISTINE
     Indication: HEPATOBLASTOMA
     Route: 065

REACTIONS (5)
  - Off label use [Unknown]
  - Colitis [Unknown]
  - Febrile neutropenia [Unknown]
  - Pneumonia viral [Unknown]
  - Product use issue [Unknown]
